FAERS Safety Report 9771982 (Version 2)
Quarter: 2014Q1

REPORT INFORMATION
  Report Type: Spontaneous
  Country: US (occurrence: None)
  Receive Date: 20131001
  Receipt Date: 20140218
  Transmission Date: 20141002
  Serious: Yes (Other)
  Sender: FDA-Public Use
  Company Number: JPI-P-033244

PATIENT
  Age: 35 Year
  Sex: Female

DRUGS (4)
  1. XYREM (SODIUM OXYBATE) ORAL SOLUTION, 500MG/ML [Suspect]
     Indication: SLEEP DISORDER
     Dosage: 2.25G BID FOR 2WKS/3.0G BID FOR 2WKS, 3.75G FOR 2WKS
     Route: 048
     Dates: start: 20070703
  2. MAXALT (RIZATRIPTAN BENZOATE) [Concomitant]
  3. PROCHLORPERAZINE EDISYLATE (PROCHLORPERAZINE EDISYLATE) [Concomitant]
  4. ADVIL (IBUPROFEN) [Concomitant]

REACTIONS (7)
  - Jaw fracture [None]
  - Bone disorder [None]
  - Device breakage [None]
  - Vomiting [None]
  - Migraine [None]
  - Bone loss [None]
  - Medical device complication [None]
